FAERS Safety Report 13439046 (Version 1)
Quarter: 2017Q2

REPORT INFORMATION
  Report Type: Spontaneous
  Country: US (occurrence: US)
  Receive Date: 20170413
  Receipt Date: 20170413
  Transmission Date: 20170830
  Serious: Yes (Other)
  Sender: FDA-Public Use
  Company Number: US-ROCHE-772413

PATIENT
  Sex: Female
  Weight: 54.4 kg

DRUGS (5)
  1. TINIDAZOLE. [Concomitant]
     Active Substance: TINIDAZOLE
     Route: 048
  2. MEPRON [Concomitant]
     Active Substance: ATOVAQUONE
     Indication: BABESIOSIS
     Route: 048
  3. AZITHROMYCIN ANHYDROUS. [Concomitant]
     Active Substance: AZITHROMYCIN ANHYDROUS
     Indication: BORRELIA INFECTION
     Dosage: OTHER INDICATION: BABESIOSIS
     Route: 048
  4. ROCEPHIN [Suspect]
     Active Substance: CEFTRIAXONE SODIUM
     Indication: LYME DISEASE
     Route: 042
  5. ACTIGALL [Concomitant]
     Active Substance: URSODIOL
     Dosage: INDICATION: PREVENT GALL STONE
     Route: 048

REACTIONS (1)
  - Nephrolithiasis [Unknown]
